FAERS Safety Report 7330256-7 (Version None)
Quarter: 2011Q1

REPORT INFORMATION
  Report Type: 
  Country: None (occurrence: None)
  Receive Date: 20110303
  Receipt Date: 20110222
  Transmission Date: 20110831
  Serious: Yes (Hospitalization)
  Sender: FDA-Public Use
  Company Number: US-BRISTOL-MYERS SQUIBB COMPANY-15044639

PATIENT
  Age: 55 Year
  Sex: Female
  Weight: 74 kg

DRUGS (9)
  1. GASTRO-STOP [Concomitant]
     Indication: DIARRHOEA
     Dates: start: 20080101
  2. CETUXIMAB [Suspect]
     Indication: COLORECTAL CANCER METASTATIC
     Dosage: WEEKS:22,LAST DOSE PRIOR TO 31MAR10 IS 24MAR10
     Route: 042
     Dates: start: 20091104
  3. OXYCONTIN [Concomitant]
     Indication: BACK PAIN
     Dates: start: 20091001
  4. BRIVANIB ALANINATE [Suspect]
     Indication: COLORECTAL CANCER METASTATIC
     Dosage: WEEKS:22 LAST DOSE PRIOR TO 31MAR10 IS 23MAR10
     Route: 048
     Dates: start: 20091104
  5. ENDONE [Concomitant]
     Indication: BACK PAIN
     Dates: start: 20091201
  6. PLACEBO [Suspect]
     Indication: COLORECTAL CANCER METASTATIC
     Route: 048
     Dates: start: 20091104
  7. TELMISARTAN [Concomitant]
     Indication: HYPERTENSION
     Dates: start: 20080101
  8. TEMAZEPAM [Concomitant]
     Indication: SLEEP DISORDER
     Dates: start: 20070101
  9. NEXIUM [Concomitant]
     Indication: GASTROOESOPHAGEAL REFLUX DISEASE
     Dates: start: 20050101

REACTIONS (2)
  - PRINZMETAL ANGINA [None]
  - ALANINE AMINOTRANSFERASE INCREASED [None]
